FAERS Safety Report 17412135 (Version 5)
Quarter: 2021Q2

REPORT INFORMATION
  Report Type: Spontaneous
  Country: US (occurrence: US)
  Receive Date: 20200213
  Receipt Date: 20210624
  Transmission Date: 20210716
  Serious: Yes (Other)
  Sender: FDA-Public Use
  Company Number: US-GILEAD-2020-0450634

PATIENT
  Age: 49 Year
  Sex: Male
  Weight: 65.76 kg

DRUGS (108)
  1. ODEFSEY [Concomitant]
     Active Substance: EMTRICITABINE\RILPIVIRINE HYDROCHLORIDE\TENOFOVIR ALAFENAMIDE FUMARATE
  2. TYLENOL WITH CODEINE [Concomitant]
     Active Substance: ACETAMINOPHEN\CODEINE PHOSPHATE
  3. ISENTRESS [Concomitant]
     Active Substance: RALTEGRAVIR POTASSIUM
  4. RESTASIS [Concomitant]
     Active Substance: CYCLOSPORINE
  5. FINASTERIDE. [Concomitant]
     Active Substance: FINASTERIDE
  6. CARVEDILOL. [Concomitant]
     Active Substance: CARVEDILOL
  7. RENAGEL [SEVELAMER CARBONATE] [Concomitant]
  8. PRAMOSONE E [Concomitant]
     Active Substance: HYDROCORTISONE ACETATE\PRAMOXINE HYDROCHLORIDE
  9. PROGRAF [Concomitant]
     Active Substance: TACROLIMUS
  10. MAGNESIUM OXIDE. [Concomitant]
     Active Substance: MAGNESIUM OXIDE
  11. AZITHROMYCIN ANHYDROUS. [Concomitant]
     Active Substance: AZITHROMYCIN ANHYDROUS
  12. LEVALBUTEROL HCL [Concomitant]
     Active Substance: LEVALBUTEROL HYDROCHLORIDE
  13. DIVALPROEX [Concomitant]
     Active Substance: DIVALPROEX SODIUM
  14. PREZCOBIX [Concomitant]
     Active Substance: COBICISTAT\DARUNAVIR ETHANOLATE
  15. ELAVIL [ALLOPURINOL] [Concomitant]
     Active Substance: ALLOPURINOL
  16. RENVELA [Concomitant]
     Active Substance: SEVELAMER CARBONATE
  17. FLUTICASONE. [Concomitant]
     Active Substance: FLUTICASONE
  18. METHOCARBAMOL. [Concomitant]
     Active Substance: METHOCARBAMOL
  19. NEXIUM I.V. [Concomitant]
     Active Substance: ESOMEPRAZOLE SODIUM
  20. MONTELUKAST [Concomitant]
     Active Substance: MONTELUKAST SODIUM
  21. AMLODIPINE BESYLATE. [Concomitant]
     Active Substance: AMLODIPINE BESYLATE
  22. NEPHRO VITE RX [Concomitant]
     Active Substance: ASCORBIC ACID\BIOTIN\CALCIUM PANTOTHENATE\CYANOCOBALAMIN\FOLIC ACID\NIACINAMIDE\PYRIDOXINE HYDROCHLORIDE\RIBOFLAVIN\THIAMINE MONONITRATE
  23. REQUIP [Concomitant]
     Active Substance: ROPINIROLE HYDROCHLORIDE
  24. MELATONIN [Concomitant]
     Active Substance: MELATONIN
  25. BACTRIM [Concomitant]
     Active Substance: SULFAMETHOXAZOLE\TRIMETHOPRIM
  26. SUMATRIPTAN. [Concomitant]
     Active Substance: SUMATRIPTAN
  27. EMTRICITABINE [Concomitant]
     Active Substance: EMTRICITABINE
  28. MIRALAX [Concomitant]
     Active Substance: POLYETHYLENE GLYCOL 3350
  29. TACROLIMUS. [Concomitant]
     Active Substance: TACROLIMUS
  30. COMBIVIR [Concomitant]
     Active Substance: LAMIVUDINE\ZIDOVUDINE
  31. DOXEPIN [Concomitant]
     Active Substance: DOXEPIN
  32. MOMETASONE FUROATE. [Concomitant]
     Active Substance: MOMETASONE FUROATE
  33. AVODART [Concomitant]
     Active Substance: DUTASTERIDE
  34. DAPSONE. [Concomitant]
     Active Substance: DAPSONE
  35. MUCINEX [Concomitant]
     Active Substance: GUAIFENESIN
  36. ZOLMITRIPTAN. [Concomitant]
     Active Substance: ZOLMITRIPTAN
  37. OXYCODONE/APAP [OXYCODONE HYDROCHLORIDE;PARACETAMOL] [Concomitant]
     Active Substance: ACETAMINOPHEN\OXYCODONE HYDROCHLORIDE
  38. CODEINE GUAIFENESIN [Concomitant]
     Active Substance: CODEINE PHOSPHATE\GUAIFENESIN
  39. TRUVADA [Suspect]
     Active Substance: EMTRICITABINE\TENOFOVIR DISOPROXIL FUMARATE
     Dosage: 1 DOSAGE FORM
     Route: 048
     Dates: start: 200811, end: 20161211
  40. NAPROXEN. [Suspect]
     Active Substance: NAPROXEN
     Indication: PRODUCT USED FOR UNKNOWN INDICATION
     Dosage: 500 MG, PRN
     Route: 048
  41. FOLBIC [Concomitant]
     Active Substance: CYANOCOBALAMIN\FOLIC ACID\PYRIDOXINE
  42. BEPREVE [Concomitant]
     Active Substance: BEPOTASTINE BESILATE
  43. DEPO?TESTOSTERONE [Concomitant]
     Active Substance: TESTOSTERONE CYPIONATE
  44. FUROSEMIDE. [Concomitant]
     Active Substance: FUROSEMIDE
  45. AMITRIPTYLINE [Concomitant]
     Active Substance: AMITRIPTYLINE
  46. PREDNISONE. [Concomitant]
     Active Substance: PREDNISONE
  47. VALCYTE [Concomitant]
     Active Substance: VALGANCICLOVIR HYDROCHLORIDE
  48. NEURONTIN [Concomitant]
     Active Substance: GABAPENTIN
  49. IMIQUIMOD. [Concomitant]
     Active Substance: IMIQUIMOD
  50. FIORICET [Concomitant]
     Active Substance: ACETAMINOPHEN\BUTALBITAL\CAFFEINE
  51. ESCITALOPRAM OXALATE. [Concomitant]
     Active Substance: ESCITALOPRAM OXALATE
  52. DOLUTEGRAVIR [Concomitant]
     Active Substance: DOLUTEGRAVIR
  53. TERIPARATIDE RECOMBINANT [Concomitant]
  54. TIVICAY [Concomitant]
     Active Substance: DOLUTEGRAVIR SODIUM
  55. CITALOPRAM [Concomitant]
     Active Substance: CITALOPRAM HYDROBROMIDE
  56. AZT [Concomitant]
     Active Substance: ZIDOVUDINE
  57. ASPIRIN (E.C.) [Concomitant]
     Active Substance: ASPIRIN
  58. CORDRAN [Concomitant]
     Active Substance: FLURANDRENOLIDE
  59. HYDROCORTISONE VALERATE. [Concomitant]
     Active Substance: HYDROCORTISONE VALERATE
  60. PROMETHAZINE [Concomitant]
     Active Substance: PROMETHAZINE HYDROCHLORIDE
  61. SUCRALFATE. [Concomitant]
     Active Substance: SUCRALFATE
  62. ZOMIG [Concomitant]
     Active Substance: ZOLMITRIPTAN
  63. ZERIT [Concomitant]
     Active Substance: STAVUDINE
  64. CLONIDINE. [Concomitant]
     Active Substance: CLONIDINE
  65. FLUOROURACIL. [Concomitant]
     Active Substance: FLUOROURACIL
  66. ESZOPICLONE. [Concomitant]
     Active Substance: ESZOPICLONE
  67. ATOVAQUONE. [Concomitant]
     Active Substance: ATOVAQUONE
  68. LEVOFLOXACIN. [Concomitant]
     Active Substance: LEVOFLOXACIN
  69. DILAUDID [Concomitant]
     Active Substance: HYDROMORPHONE HYDROCHLORIDE
  70. BUPROPION. [Concomitant]
     Active Substance: BUPROPION
  71. FLEET LAXATIVE [Concomitant]
  72. RETROVIR [Concomitant]
     Active Substance: ZIDOVUDINE
  73. TRUVADA [Suspect]
     Active Substance: EMTRICITABINE\TENOFOVIR DISOPROXIL FUMARATE
     Dosage: UNK
     Route: 048
     Dates: start: 20081111, end: 20170401
  74. BIKTARVY [Concomitant]
     Active Substance: BICTEGRAVIR SODIUM\EMTRICITABINE\TENOFOVIR ALAFENAMIDE FUMARATE
  75. MELOXICAM. [Concomitant]
     Active Substance: MELOXICAM
  76. TRIUMEQ [Concomitant]
     Active Substance: ABACAVIR SULFATE\DOLUTEGRAVIR SODIUM\LAMIVUDINE
  77. DENTALL [Concomitant]
  78. TRIGLIDE [Concomitant]
     Active Substance: FENOFIBRATE
  79. BACLOFEN. [Concomitant]
     Active Substance: BACLOFEN
  80. HYDROXYZINE HCL [Concomitant]
     Active Substance: HYDROXYZINE HYDROCHLORIDE
  81. POLYETHYLENE GLYCOL [Concomitant]
     Active Substance: POLYETHYLENE GLYCOLS
  82. SENSIPAR [Concomitant]
     Active Substance: CINACALCET HYDROCHLORIDE
  83. PROTONIX [OMEPRAZOLE] [Concomitant]
     Active Substance: OMEPRAZOLE
  84. MYCOPHENOLIC ACID. [Concomitant]
     Active Substance: MYCOPHENOLIC ACID
  85. NYSTATIN. [Concomitant]
     Active Substance: NYSTATIN
  86. ALENDRONATE SODIUM. [Concomitant]
     Active Substance: ALENDRONATE SODIUM
  87. LIDOCAINE. [Concomitant]
     Active Substance: LIDOCAINE
  88. TRUVADA [Suspect]
     Active Substance: EMTRICITABINE\TENOFOVIR DISOPROXIL FUMARATE
     Indication: HIV INFECTION
     Dosage: 1 DOSAGE FORM, QD
     Route: 048
     Dates: start: 201004, end: 201612
  89. CELEBREX [Concomitant]
     Active Substance: CELECOXIB
  90. ACYCLOVIR ABBOTT VIAL [Concomitant]
  91. ANDRODERM [Concomitant]
     Active Substance: TESTOSTERONE
  92. LOPERAMIDE [Concomitant]
     Active Substance: LOPERAMIDE
  93. MUPIROCIN. [Concomitant]
     Active Substance: MUPIROCIN
  94. LISINOPRIL. [Concomitant]
     Active Substance: LISINOPRIL
  95. LAMIVUDINE. [Concomitant]
     Active Substance: LAMIVUDINE
  96. VIAGRA [Concomitant]
     Active Substance: SILDENAFIL CITRATE
  97. TYLENOL EXTRA STRENGTH [Concomitant]
     Active Substance: ACETAMINOPHEN
  98. ALLEGRA [Concomitant]
     Active Substance: FEXOFENADINE HYDROCHLORIDE
  99. PRILOCAINE [Concomitant]
     Active Substance: PRILOCAINE
  100. PANTOPRAZOLE [Concomitant]
     Active Substance: PANTOPRAZOLE
  101. PENICILLIN [PENICILLIN NOS] [Concomitant]
     Active Substance: PENICILLIN
  102. CHLORHEXIDINE GLUCONATE. [Concomitant]
     Active Substance: CHLORHEXIDINE GLUCONATE
  103. GABAPENTIN. [Concomitant]
     Active Substance: GABAPENTIN
  104. TRIAMCINOLONE ACETONIDE. [Concomitant]
     Active Substance: TRIAMCINOLONE ACETONIDE
  105. PERIOGARD [Concomitant]
     Active Substance: CHLORHEXIDINE GLUCONATE
  106. MYFORTIC [Concomitant]
     Active Substance: MYCOPHENOLATE SODIUM
  107. DEPAKOTE [Concomitant]
     Active Substance: DIVALPROEX SODIUM
  108. LAMOTRIGINE. [Concomitant]
     Active Substance: LAMOTRIGINE

REACTIONS (20)
  - End stage renal disease [Not Recovered/Not Resolved]
  - Pain [Unknown]
  - Anxiety [Unknown]
  - Arteriovenous malformation [Unknown]
  - Chronic kidney disease [Not Recovered/Not Resolved]
  - Carpal tunnel syndrome [Not Recovered/Not Resolved]
  - Osteoporosis [Not Recovered/Not Resolved]
  - Bone density decreased [Unknown]
  - Economic problem [Unknown]
  - Rotator cuff repair [Not Recovered/Not Resolved]
  - Hip arthroplasty [Not Recovered/Not Resolved]
  - Aortic aneurysm [Unknown]
  - Upper limb fracture [Not Recovered/Not Resolved]
  - Anhedonia [Unknown]
  - Renal tubular injury [Unknown]
  - Renal failure [Unknown]
  - Osteopenia [Not Recovered/Not Resolved]
  - Spinal cord injury [Not Recovered/Not Resolved]
  - Fracture [Unknown]
  - Emotional distress [Unknown]

NARRATIVE: CASE EVENT DATE: 2011
